FAERS Safety Report 4422179-8 (Version None)
Quarter: 2004Q3

REPORT INFORMATION
  Report Type: 
  Country: None (occurrence: None)
  Receive Date: 20040810
  Receipt Date: 20040715
  Transmission Date: 20050211
  Serious: Yes (Hospitalization)
  Sender: FDA-Public Use
  Company Number: US-BRISTOL-MYERS SQUIBB COMPANY-12642187

PATIENT
  Age: 68 Year
  Sex: Male

DRUGS (7)
  1. PRAVACHOL [Suspect]
     Indication: BLOOD CHOLESTEROL INCREASED
     Dosage: DISCONTINUED DUE TO EVENT; LAST DOSE PRIOR TO HOSPITALIZATION ON 03-JUN-2004.
     Route: 048
     Dates: start: 20040229, end: 20040603
  2. PLAVIX [Concomitant]
     Dates: start: 20040419
  3. ASPIRIN [Concomitant]
  4. VITAMIN E [Concomitant]
  5. VITAMIN C [Concomitant]
  6. VITAMIN B-12 [Concomitant]
  7. TOPROL-XL [Concomitant]
     Dates: start: 20040419

REACTIONS (1)
  - CORONARY ARTERY OCCLUSION [None]
